FAERS Safety Report 25245414 (Version 2)
Quarter: 2025Q2

REPORT INFORMATION
  Report Type: Spontaneous
  Country: US (occurrence: US)
  Receive Date: 20250428
  Receipt Date: 20250611
  Transmission Date: 20250717
  Serious: Yes (Other)
  Sender: SANOFI AVENTIS
  Company Number: US-SA-2025SA119394

PATIENT
  Sex: Female

DRUGS (23)
  1. DUPIXENT [Suspect]
     Active Substance: DUPILUMAB
     Indication: Asthma
     Dosage: 300 MG, QOW
     Route: 058
  2. METHOTREXATE [Concomitant]
     Active Substance: METHOTREXATE
  3. LEVALBUTEROL TARTRATE [Concomitant]
     Active Substance: LEVALBUTEROL TARTRATE
  4. LEVALBUTEROL HYDROCHLORIDE [Concomitant]
     Active Substance: LEVALBUTEROL HYDROCHLORIDE
  5. FLECAINIDE ACETATE [Concomitant]
     Active Substance: FLECAINIDE ACETATE
  6. DILTIAZEM [Concomitant]
     Active Substance: DILTIAZEM
  7. DEXILANT [Concomitant]
     Active Substance: DEXLANSOPRAZOLE
  8. DOCUSATE SODIUM [Concomitant]
     Active Substance: DOCUSATE SODIUM
  9. SENNA S [Concomitant]
     Active Substance: DOCUSATE SODIUM\SENNOSIDES
  10. ASPIRIN [Concomitant]
     Active Substance: ASPIRIN
  11. DULERA [Concomitant]
     Active Substance: FORMOTEROL FUMARATE DIHYDRATE\MOMETASONE FUROATE
  12. SPIRIVA RESPIMAT [Concomitant]
     Active Substance: TIOTROPIUM BROMIDE
  13. FLUTICASONE PROPIONATE [Concomitant]
     Active Substance: FLUTICASONE PROPIONATE
  14. LORATADINE [Concomitant]
     Active Substance: LORATADINE
  15. MONTELUKAST SODIUM [Concomitant]
     Active Substance: MONTELUKAST SODIUM
  16. LEVOTHYROXINE SODIUM [Concomitant]
     Active Substance: LEVOTHYROXINE SODIUM
  17. VITAMIN D3 [Concomitant]
     Active Substance: CHOLECALCIFEROL
  18. TYLENOL EXTRA STRENGTH [Concomitant]
     Active Substance: ACETAMINOPHEN
  19. DICLOFENAC SODIUM [Concomitant]
     Active Substance: DICLOFENAC SODIUM
  20. ACETAMINOPHEN\HYDROCODONE [Concomitant]
     Active Substance: ACETAMINOPHEN\HYDROCODONE
  21. SULFASALAZINE [Concomitant]
     Active Substance: SULFASALAZINE
  22. DEXLANSOPRAZOLE [Concomitant]
     Active Substance: DEXLANSOPRAZOLE
  23. CEPHALEXIN [Concomitant]
     Active Substance: CEPHALEXIN

REACTIONS (2)
  - Invasive ductal breast carcinoma [Unknown]
  - Neoplasm [Unknown]
